FAERS Safety Report 21230538 (Version 1)
Quarter: 2022Q3

REPORT INFORMATION
  Report Type: Spontaneous
  Country: US (occurrence: US)
  Receive Date: 20220818
  Receipt Date: 20220818
  Transmission Date: 20221026
  Serious: No
  Sender: FDA-Public Use
  Company Number: US-AMGEN-USASP2022139801

PATIENT

DRUGS (2)
  1. ARANESP [Suspect]
     Active Substance: DARBEPOETIN ALFA
     Indication: Product used for unknown indication
     Dosage: 25 MCG/1ML | 60 MCG/1ML
     Route: 065
  2. NEUPOGEN [Suspect]
     Active Substance: FILGRASTIM
     Indication: Product used for unknown indication
     Dosage: 300 MCG | 480 MCG
     Route: 065

REACTIONS (2)
  - Product storage error [Unknown]
  - Intercepted product administration error [Unknown]

NARRATIVE: CASE EVENT DATE: 20220810
